FAERS Safety Report 5796920-6 (Version None)
Quarter: 2008Q2

REPORT INFORMATION
  Report Type: 
  Country: None (occurrence: None)
  Receive Date: 20080618
  Receipt Date: 20070605
  Transmission Date: 20081010
  Serious: Yes (Hospitalization)
  Sender: FDA-Public Use
  Company Number: 200712862US

PATIENT
  Age: 56 Year
  Sex: Male

DRUGS (4)
  1. LANTUS [Suspect]
     Indication: TYPE 2 DIABETES MELLITUS
     Dosage: 20 U INJ
     Dates: start: 20061101
  2. INSULIN ASPART (NOVOLOG) SOLUTION FOR INJECTION [Suspect]
     Dosage: 6 U INJ
  3. LISINOPRIL [Concomitant]
  4. HUMALOG [Concomitant]

REACTIONS (2)
  - BLOOD GLUCOSE INCREASED [None]
  - HYPOGLYCAEMIA [None]
